FAERS Safety Report 9703423 (Version 2)
Quarter: 2016Q2

REPORT INFORMATION
  Report Type: Report from Study
  Country: US (occurrence: US)
  Receive Date: 20131122
  Receipt Date: 20160520
  Transmission Date: 20160815
  Serious: Yes (Other)
  Sender: FDA-Public Use
  Company Number: US-ROCHE-1304483

PATIENT
  Sex: Female

DRUGS (10)
  1. XOLAIR [Suspect]
     Active Substance: OMALIZUMAB
     Indication: ASTHMA
     Dosage: EVERY 2 WEEKS
     Route: 058
  2. VERAPAMIL [Concomitant]
     Active Substance: VERAPAMIL HYDROCHLORIDE
  3. SINGULAIR [Concomitant]
     Active Substance: MONTELUKAST SODIUM
  4. LEVOTHYROXINE. [Concomitant]
     Active Substance: LEVOTHYROXINE
  5. ASPIRIN. [Concomitant]
     Active Substance: ASPIRIN
  6. ZOCOR [Concomitant]
     Active Substance: SIMVASTATIN
  7. COZAAR [Concomitant]
     Active Substance: LOSARTAN POTASSIUM
  8. VENTOLIN [Concomitant]
     Active Substance: ALBUTEROL SULFATE
  9. TADALAFIL [Concomitant]
     Active Substance: TADALAFIL
  10. NEXIUM [Concomitant]
     Active Substance: ESOMEPRAZOLE MAGNESIUM

REACTIONS (17)
  - Pulmonary hypertension [Unknown]
  - Chills [Unknown]
  - Tachycardia [Unknown]
  - Dyspnoea [Unknown]
  - Dyspnoea exertional [Unknown]
  - Upper respiratory tract infection [Unknown]
  - Nasal polyps [Unknown]
  - Dyslipidaemia [Unknown]
  - Depression [Unknown]
  - Rhinitis [Unknown]
  - Asthma [Unknown]
  - Gastrooesophageal reflux disease [Unknown]
  - Hypertension [Unknown]
  - Headache [Unknown]
  - Cough [Unknown]
  - Sleep apnoea syndrome [Unknown]
  - Sinusitis [Unknown]
